FAERS Safety Report 11498743 (Version 1)
Quarter: 2015Q3

REPORT INFORMATION
  Report Type: Report from Study
  Country: US (occurrence: US)
  Receive Date: 20150912
  Receipt Date: 20150912
  Transmission Date: 20151125
  Serious: No
  Sender: FDA-Public Use
  Company Number: US-AMGEN-USASL2015089971

PATIENT
  Age: 56 Year
  Sex: Male

DRUGS (1)
  1. ENBREL [Suspect]
     Active Substance: ETANERCEPT
     Indication: PSORIASIS
     Dosage: 50 MG, QWK
     Route: 065

REACTIONS (6)
  - Injection site reaction [Unknown]
  - Psoriasis [Unknown]
  - Injection site swelling [Unknown]
  - Memory impairment [Unknown]
  - Drug dose omission [Unknown]
  - Skin burning sensation [Unknown]
